FAERS Safety Report 13592460 (Version 1)
Quarter: 2017Q2

REPORT INFORMATION
  Report Type: Spontaneous
  Country: FR (occurrence: FR)
  Receive Date: 20170530
  Receipt Date: 20170530
  Transmission Date: 20170830
  Serious: Yes (Hospitalization)
  Sender: FDA-Public Use
  Company Number: FR-TEVA-771754ROM

PATIENT
  Age: 64 Year
  Sex: Female
  Weight: 114 kg

DRUGS (15)
  1. SPASFON LYOC [Suspect]
     Active Substance: PHLOROGLUCINOL
     Indication: MUSCLE SPASMS
     Dosage: 4 DOSAGE FORMS DAILY; DAILY DOSE:4 DOSAGE FORMS;FORM : LYOPHILISATE ORAL
     Route: 048
  2. EFFERALGAN [Suspect]
     Active Substance: ACETAMINOPHEN
     Indication: PAIN
     Dosage: 1 TO 4 DF PER DAY AT REQUEST
     Route: 048
  3. AMLOR 5 MG [Suspect]
     Active Substance: AMLODIPINE BESYLATE
     Indication: HYPERTENSION
     Dosage: 5 MILLIGRAM DAILY;
     Route: 048
     Dates: end: 201704
  4. VENLAFAXINE LP 75 MG [Suspect]
     Active Substance: VENLAFAXINE HYDROCHLORIDE
     Indication: MENTAL DISORDER
     Dosage: 2 DOSAGE FORMS DAILY; DAILY DOSE: 2 DOSAGE FORMS IN THE MORNING
     Route: 048
  5. INEXIUM 40 MG [Suspect]
     Active Substance: ESOMEPRAZOLE
     Indication: GASTROOESOPHAGEAL REFLUX DISEASE
     Dosage: 2 DOSAGE FORMS DAILY; DAILY DOSE:2 DOSAGE FORMS;1 DF IN THE MORNING AND 1 DF IN THE EVENING
     Route: 048
  6. DEPAMIDE 300 MG [Suspect]
     Active Substance: VALPROMIDE
     Indication: MENTAL DISORDER
     Dosage: 3 DOSAGE FORMS DAILY;
     Route: 048
  7. LEVOTHYROXINE 50 MCG [Suspect]
     Active Substance: LEVOTHYROXINE
     Indication: HYPOTHYROIDISM
     Dosage: 1 DOSAGE FORMS DAILY; DAILY DOSE:1 DOSAGE FORM IN THE MORNING
     Route: 048
  8. ACTISKENAN 5 MG [Suspect]
     Active Substance: MORPHINE SULFATE
     Indication: PAIN
     Dosage: 3 DOSAGE FORMS DAILY;
     Route: 048
  9. NOCTAMIDE 1 MG [Suspect]
     Active Substance: LORMETAZEPAM
     Indication: INSOMNIA
     Dosage: 2 DOSAGE FORMS DAILY;
     Route: 048
  10. LIPANTHYL 160 MG [Suspect]
     Active Substance: FENOFIBRATE
     Indication: HYPERLIPIDAEMIA
     Dosage: 1 DOSAGE FORMS DAILY;
     Route: 048
  11. BISOPROLOL 5 MG [Suspect]
     Active Substance: BISOPROLOL
     Indication: HYPERTENSION
     Dosage: 5 MILLIGRAM DAILY; IN THE MORNING
     Route: 048
  12. CELEBREX [Suspect]
     Active Substance: CELECOXIB
     Indication: OSTEOARTHRITIS
     Dosage: 1 DOSAGE FORMS DAILY; DAILY DOSE:1 DOSAGE FORM IN THE EVENING
     Route: 048
  13. COKENZEN 16 MG/12,5 MG [Suspect]
     Active Substance: CANDESARTAN CILEXETIL\HYDROCHLOROTHIAZIDE
     Indication: HYPERTENSION
     Dosage: 1 DOSAGE FORMS DAILY;
     Route: 048
     Dates: end: 201704
  14. LASILIX 40 MG [Suspect]
     Active Substance: FUROSEMIDE
     Indication: HYPERTENSION
     Dosage: 1 DOSAGE FORMS DAILY;
     Route: 048
  15. PRAZEPAM [Suspect]
     Active Substance: PRAZEPAM
     Indication: MENTAL DISORDER
     Dosage: 20 MILLIGRAM DAILY; DAILY DOSE:2 DOSAGE FORMS;1 DF IN THE MORNING AND 1 DF IN THE EVENING
     Route: 048

REACTIONS (2)
  - Oedema peripheral [Recovered/Resolved]
  - Condition aggravated [Recovered/Resolved]

NARRATIVE: CASE EVENT DATE: 20170422
